FAERS Safety Report 4864519-1 (Version None)
Quarter: 2005Q4

REPORT INFORMATION
  Report Type: 
  Country: None (occurrence: None)
  Receive Date: 20051222
  Receipt Date: 20051115
  Transmission Date: 20060501
  Serious: Yes (Life-Threatening, Hospitalization)
  Sender: FDA-Public Use
  Company Number: DE-ROCHE-425036

PATIENT
  Age: 57 Year
  Sex: Male
  Weight: 75 kg

DRUGS (2)
  1. PEGASYS [Suspect]
     Route: 058
     Dates: start: 20050802, end: 20051107
  2. REBETOL [Suspect]
     Route: 048
     Dates: start: 20050802, end: 20051107

REACTIONS (2)
  - HEPATIC CIRRHOSIS [None]
  - HEPATITIS B [None]
